FAERS Safety Report 4470827-9 (Version None)
Quarter: 2004Q4

REPORT INFORMATION
  Report Type: 
  Country: None (occurrence: None)
  Receive Date: 20041006
  Receipt Date: 20041006
  Transmission Date: 20050328
  Serious: Yes (Hospitalization)
  Sender: FDA-Public Use
  Company Number: None

PATIENT
  Sex: Female
  Weight: 79.8331 kg

DRUGS (6)
  1. ALL-TRANS-RETINOIC ACID [Suspect]
     Indication: ACUTE PROMYELOCYTIC LEUKAEMIA
     Dosage: 90 MG Q DAY   14 DAYS   BUCCAL
     Route: 002
     Dates: start: 20030210, end: 20030224
  2. DEXAMETHASONE [Concomitant]
  3. AUGMENTIN '125' [Concomitant]
  4. PROTONIX [Concomitant]
  5. PERCOCET [Concomitant]
  6. TRETINOIN [Concomitant]

REACTIONS (5)
  - ABDOMINAL PAIN UPPER [None]
  - ARTHRALGIA [None]
  - BACK PAIN [None]
  - NECK PAIN [None]
  - PERICARDITIS [None]
